FAERS Safety Report 6272578-7 (Version None)
Quarter: 2009Q3

REPORT INFORMATION
  Report Type: 
  Country: None (occurrence: None)
  Receive Date: 20090717
  Receipt Date: 20090713
  Transmission Date: 20100115
  Serious: Yes (Other)
  Sender: FDA-Public Use
  Company Number: CA-ABBOTT-09P-028-0584895-00

PATIENT
  Sex: Male
  Weight: 102.6 kg

DRUGS (23)
  1. LUPRON DEPOT [Suspect]
     Indication: PROSTATE CANCER
     Dates: start: 20090311, end: 20090710
  2. SALBUTAMOL HFA [Concomitant]
     Indication: DRUG USE FOR UNKNOWN INDICATION
     Route: 055
  3. ADVAIR HFA [Concomitant]
     Indication: DRUG USE FOR UNKNOWN INDICATION
     Route: 055
  4. SPIRIVA [Concomitant]
     Indication: DRUG USE FOR UNKNOWN INDICATION
     Route: 055
  5. FLUTAMIDE [Concomitant]
     Indication: DRUG USE FOR UNKNOWN INDICATION
  6. CALCIUM [Concomitant]
     Indication: DRUG USE FOR UNKNOWN INDICATION
  7. VITAMIN D [Concomitant]
     Indication: DRUG USE FOR UNKNOWN INDICATION
  8. ASAPHEN [Concomitant]
     Indication: DRUG USE FOR UNKNOWN INDICATION
  9. VENLAFAXINE HYDROCHLORIDE [Concomitant]
     Indication: DRUG USE FOR UNKNOWN INDICATION
  10. TRAZODONE [Concomitant]
     Indication: DRUG USE FOR UNKNOWN INDICATION
     Dosage: 1/2 TABLET AT NIGHT AS NEEDED
  11. CRESTOR [Concomitant]
     Indication: DRUG USE FOR UNKNOWN INDICATION
  12. HYDROCHLOROTHIAZIDE [Concomitant]
     Indication: DRUG USE FOR UNKNOWN INDICATION
     Dosage: 1/2 TABLET DAILY
  13. LORAZEPAM [Concomitant]
     Indication: DRUG USE FOR UNKNOWN INDICATION
     Dosage: 1MG OR 1/2 TABLET AS NEEDED
  14. CLOBETASOL CORTICOSTEROID [Concomitant]
     Indication: ECZEMA
  15. TYLENOL W/ CODEINE NO. 3 [Concomitant]
     Indication: DRUG USE FOR UNKNOWN INDICATION
  16. VIT C [Concomitant]
     Indication: DRUG USE FOR UNKNOWN INDICATION
  17. VITAMIN E [Concomitant]
     Indication: DRUG USE FOR UNKNOWN INDICATION
  18. HALIBUT LIVER OIL [Concomitant]
     Indication: DRUG USE FOR UNKNOWN INDICATION
  19. VITAMINE A [Concomitant]
     Indication: DRUG USE FOR UNKNOWN INDICATION
  20. VITAMINE A AND VITS D [Concomitant]
     Indication: DRUG USE FOR UNKNOWN INDICATION
  21. SALMON OIL CAPSULES [Concomitant]
     Indication: DRUG USE FOR UNKNOWN INDICATION
  22. ACETAMINOPHEN W/ CODEINE [Concomitant]
     Indication: DRUG USE FOR UNKNOWN INDICATION
  23. ACTIFED [Concomitant]
     Indication: DRUG USE FOR UNKNOWN INDICATION

REACTIONS (5)
  - CONFUSIONAL STATE [None]
  - DYSPNOEA [None]
  - HEPATIC NEOPLASM MALIGNANT [None]
  - REFUSAL OF TREATMENT BY PATIENT [None]
  - TREATMENT NONCOMPLIANCE [None]
